FAERS Safety Report 20734412 (Version 2)
Quarter: 2022Q2

REPORT INFORMATION
  Report Type: Spontaneous
  Country: US (occurrence: US)
  Receive Date: 20220421
  Receipt Date: 20220425
  Transmission Date: 20220721
  Serious: Yes (Death, Other)
  Sender: FDA-Public Use
  Company Number: US-SA-SAC20220419001069

PATIENT
  Age: 49 Year
  Sex: Male

DRUGS (1)
  1. ZANTAC [Suspect]
     Active Substance: RANITIDINE HYDROCHLORIDE
     Indication: Gastrooesophageal reflux disease
     Dosage: UNK, QD
     Route: 065
     Dates: start: 199701, end: 201712

REACTIONS (9)
  - Colorectal cancer [Fatal]
  - Malignant peritoneal neoplasm [Fatal]
  - Neoplasm malignant [Fatal]
  - Hepatic cancer [Fatal]
  - Bone cancer [Fatal]
  - Injury [Fatal]
  - Lung carcinoma cell type unspecified stage IV [Fatal]
  - Bone cancer metastatic [Fatal]
  - Unevaluable event [Fatal]

NARRATIVE: CASE EVENT DATE: 20170824
